FAERS Safety Report 4531918-7 (Version None)
Quarter: 2004Q4

REPORT INFORMATION
  Report Type: 
  Country: None (occurrence: None)
  Receive Date: 20041216
  Receipt Date: 20041210
  Transmission Date: 20050328
  Serious: Yes (Disabling, Other)
  Sender: FDA-Public Use
  Company Number: 200420997BWH

PATIENT
  Sex: Male

DRUGS (9)
  1. CIPRO [Suspect]
     Indication: KIDNEY INFECTION
     Dosage: ORAL
     Route: 048
  2. IBUPROFEN [Concomitant]
  3. CELEBREX [Concomitant]
  4. NAPROSYN [Concomitant]
  5. BEXTRA [Concomitant]
  6. PREDNISONE [Concomitant]
  7. VICODIN [Concomitant]
  8. FENTANYL [Concomitant]
  9. OXYCONTIN [Concomitant]

REACTIONS (7)
  - ARTHRALGIA [None]
  - EPICONDYLITIS [None]
  - IMPAIRED WORK ABILITY [None]
  - JOINT DISLOCATION [None]
  - PLANTAR FASCIITIS [None]
  - TENDON DISORDER [None]
  - TENDONITIS [None]
